FAERS Safety Report 5636524-9 (Version None)
Quarter: 2008Q1

REPORT INFORMATION
  Report Type: 
  Country: None (occurrence: None)
  Receive Date: 20080219
  Receipt Date: 20080219
  Transmission Date: 20080703
  Serious: Yes (Other)
  Sender: FDA-Public Use
  Company Number: None

PATIENT
  Age: 33 Year
  Sex: Male
  Weight: 86.1834 kg

DRUGS (2)
  1. NASONEX [Suspect]
     Indication: NASAL POLYPS
     Dosage: 1 SPRAY 2 NASAL
     Route: 045
     Dates: start: 20071001, end: 20080218
  2. NASONEX [Suspect]
     Indication: RHINITIS ALLERGIC
     Dosage: 1 SPRAY 2 NASAL
     Route: 045
     Dates: start: 20071001, end: 20080218

REACTIONS (3)
  - PALPITATIONS [None]
  - SUPRAVENTRICULAR EXTRASYSTOLES [None]
  - VENTRICULAR EXTRASYSTOLES [None]
